FAERS Safety Report 6236816-9 (Version None)
Quarter: 2009Q2

REPORT INFORMATION
  Report Type: 
  Country: None (occurrence: None)
  Receive Date: 20090619
  Receipt Date: 20090615
  Transmission Date: 20091009
  Serious: Yes (Hospitalization)
  Sender: FDA-Public Use
  Company Number: IT-EISAI INC.-E2080-00172-SPO-IT

PATIENT
  Sex: Male

DRUGS (3)
  1. INOVELON [Suspect]
     Indication: EPILEPSY
     Route: 048
     Dates: start: 20090316, end: 20090520
  2. VALPROIC ACID SYRUP [Concomitant]
     Route: 048
  3. LAMOTRIGINE [Concomitant]
     Route: 048

REACTIONS (1)
  - PNEUMONIA [None]
